FAERS Safety Report 7382253-3 (Version None)
Quarter: 2011Q1

REPORT INFORMATION
  Report Type: 
  Country: None (occurrence: None)
  Receive Date: 20110329
  Receipt Date: 20110118
  Transmission Date: 20110831
  Serious: No
  Sender: FDA-Public Use
  Company Number: US-BAYER-2011-006002

PATIENT
  Sex: Male
  Weight: 140.59 kg

DRUGS (12)
  1. INSULIN [INSULIN] [Concomitant]
  2. PLAVIX [Concomitant]
  3. SIMVASTATIN [Concomitant]
  4. AMLODIPINE BESYLATE [Concomitant]
  5. ALEVE (CAPLET) [Suspect]
     Dosage: 5 DF, ONCE, BOTTLE COUNT 130CT
     Route: 048
     Dates: start: 20110118
  6. METOPROLOL TARTRATE [Concomitant]
  7. CILOSTAZOL [Concomitant]
  8. LISINOPRIL [Concomitant]
  9. ASPIRIN [Concomitant]
  10. LEVOXYL [Concomitant]
  11. OXYBUTYNIN [Concomitant]
  12. FUROSEMIDE [Concomitant]

REACTIONS (1)
  - NO ADVERSE EVENT [None]
